FAERS Safety Report 13746170 (Version 1)
Quarter: 2017Q3

REPORT INFORMATION
  Report Type: Spontaneous
  Country: IR (occurrence: IR)
  Receive Date: 20170712
  Receipt Date: 20170712
  Transmission Date: 20171127
  Serious: Yes (Hospitalization)
  Sender: FDA-Public Use
  Company Number: IR-BAYER-2017-130965

PATIENT
  Age: 39 Year
  Sex: Male

DRUGS (4)
  1. AMPICILLIN [Concomitant]
     Active Substance: AMPICILLIN
     Dosage: 2 G, Q4HR
  2. CEPHAZOLIN [Concomitant]
     Active Substance: CEFAZOLIN
     Indication: SUBACUTE ENDOCARDITIS
  3. GENTAMYCIN [Concomitant]
     Active Substance: GENTAMICIN
     Indication: SUBACUTE ENDOCARDITIS
     Dosage: 80 MG, Q8HR
  4. CIPROFLOXACIN. [Suspect]
     Active Substance: CIPROFLOXACIN
     Indication: SUBACUTE ENDOCARDITIS

REACTIONS (4)
  - Off label use [None]
  - Infective aneurysm [None]
  - Product use in unapproved indication [None]
  - Drug ineffective for unapproved indication [None]
